FAERS Safety Report 8553597-4 (Version None)
Quarter: 2012Q2

REPORT INFORMATION
  Report Type: 
  Country: None (occurrence: None)
  Receive Date: 20120417
  Receipt Date: 20120118
  Transmission Date: 20120825
  Serious: Yes (Other)
  Sender: FDA-Public Use
  Company Number: 11-040

PATIENT
  Age: 77 Year
  Sex: Female
  Weight: 61 kg

DRUGS (3)
  1. NAPROXEN SODIUM [Suspect]
     Indication: ARTHRITIS
     Dosage: 1 DF/ QD / ORAL
     Route: 048
     Dates: start: 20111222, end: 20120115
  2. THYROID MEDICATION [Concomitant]
  3. HIGH BLOOD PRESSURE MEDICATION [Concomitant]

REACTIONS (2)
  - INCORRECT DRUG ADMINISTRATION DURATION [None]
  - HYPERSENSITIVITY [None]
